FAERS Safety Report 14446783 (Version 3)
Quarter: 2020Q1

REPORT INFORMATION
  Report Type: Spontaneous
  Country: US (occurrence: US)
  Receive Date: 20180126
  Receipt Date: 20200318
  Transmission Date: 20200409
  Serious: Yes (Death, Hospitalization, Other)
  Sender: FDA-Public Use
  Company Number: PHEH2018US002885

PATIENT
  Age: 78 Year
  Sex: Female
  Weight: 66.85 kg

DRUGS (1)
  1. TASIGNA [Suspect]
     Active Substance: NILOTINIB
     Indication: CHRONIC MYELOID LEUKAEMIA
     Dosage: 1 DF, BID
     Route: 048
     Dates: start: 20140107, end: 201505

REACTIONS (45)
  - Encephalopathy [Unknown]
  - Failure to thrive [Unknown]
  - End stage renal disease [Unknown]
  - Bladder prolapse [Unknown]
  - Back pain [Unknown]
  - Thrombocytopenia [Unknown]
  - Sepsis [Unknown]
  - Spondylolisthesis [Unknown]
  - Arteriosclerosis [Unknown]
  - Coronary artery disease [Unknown]
  - Death [Fatal]
  - Urinary tract infection [Unknown]
  - Haematoma [Unknown]
  - Asthenia [Unknown]
  - Renal atrophy [Unknown]
  - Osteoarthritis [Unknown]
  - Peripheral arterial occlusive disease [Unknown]
  - Malnutrition [Unknown]
  - Dysphagia [Unknown]
  - Ischaemic cardiomyopathy [Unknown]
  - Pulmonary oedema [Unknown]
  - Aortic arteriosclerosis [Unknown]
  - Peripheral vascular disorder [Unknown]
  - Atelectasis [Unknown]
  - Gangrene [Unknown]
  - Hypokalaemia [Unknown]
  - Neuropathy peripheral [Unknown]
  - Injury [Unknown]
  - Osteoporosis [Unknown]
  - Pain in extremity [Unknown]
  - Feeding disorder [Unknown]
  - Chronic kidney disease [Unknown]
  - Acute kidney injury [Unknown]
  - Constipation [Unknown]
  - Diverticulitis [Unknown]
  - Myocardial infarction [Unknown]
  - Peripheral swelling [Unknown]
  - Sleep apnoea syndrome [Unknown]
  - Aortic aneurysm [Unknown]
  - Anxiety [Unknown]
  - Hyperkalaemia [Unknown]
  - Lumbar vertebral fracture [Unknown]
  - Single functional kidney [Unknown]
  - Scoliosis [Unknown]
  - Intervertebral disc compression [Unknown]

NARRATIVE: CASE EVENT DATE: 20151222
